FAERS Safety Report 7470830-0 (Version None)
Quarter: 2011Q2

REPORT INFORMATION
  Report Type: 
  Country: None (occurrence: None)
  Receive Date: 20110506
  Receipt Date: 20110506
  Transmission Date: 20111010
  Serious: Yes (Hospitalization)
  Sender: FDA-Public Use
  Company Number: None

PATIENT
  Age: 56 Year
  Sex: Female
  Weight: 74 kg

DRUGS (1)
  1. INFLIXIMAB -REMICADE- 400MG [Suspect]
     Indication: RHEUMATOID ARTHRITIS
     Dosage: 400 MG MONTHLY IV
     Route: 042

REACTIONS (10)
  - PSYCHOTIC DISORDER [None]
  - CONFUSIONAL STATE [None]
  - WITHDRAWAL SYNDROME [None]
  - DEMYELINATION [None]
  - ANXIETY [None]
  - NO THERAPEUTIC RESPONSE [None]
  - DELIRIUM [None]
  - MENTAL STATUS CHANGES [None]
  - PERSONALITY CHANGE [None]
  - HYPERTENSION [None]
